FAERS Safety Report 13068038 (Version 1)
Quarter: 2016Q4

REPORT INFORMATION
  Report Type: Spontaneous
  Country: US (occurrence: US)
  Receive Date: 20161227
  Receipt Date: 20161227
  Transmission Date: 20170207
  Serious: Yes (Death)
  Sender: FDA-Public Use
  Company Number: None

PATIENT
  Age: 59 Year
  Sex: Male

DRUGS (3)
  1. OXYCODONE [Concomitant]
     Active Substance: OXYCODONE
  2. CAPECITABINE 500MG TEVA [Suspect]
     Active Substance: CAPECITABINE
     Indication: COLON CANCER
     Route: 048
     Dates: start: 20150927, end: 201612
  3. VITAMIN B12 [Concomitant]
     Active Substance: CYANOCOBALAMIN

REACTIONS (1)
  - Death [None]

NARRATIVE: CASE EVENT DATE: 201612
